FAERS Safety Report 25279204 (Version 8)
Quarter: 2025Q3

REPORT INFORMATION
  Report Type: Spontaneous
  Country: US (occurrence: US)
  Receive Date: 20250507
  Receipt Date: 20250910
  Transmission Date: 20251021
  Serious: Yes (Other)
  Sender: IPSEN BIOPHARMACEUTICALS, INC.
  Company Number: US-IPSEN Group, Research and Development-2025-10250

PATIENT
  Age: 62 Year
  Sex: Female
  Weight: 70.80 kg

DRUGS (12)
  1. IQIRVO [Suspect]
     Active Substance: ELAFIBRANOR
     Indication: Primary biliary cholangitis
     Route: 048
  2. SHINGRIX [Concomitant]
     Active Substance: RECOMBINANT VARICELLA ZOSTER VIRUS (VZV) GLYCOPROTEIN E
  3. CORTISONE ACETATE [Concomitant]
     Active Substance: CORTISONE ACETATE
  4. LIDOCAINE HYDROCHLORIDE [Concomitant]
     Active Substance: LIDOCAINE HYDROCHLORIDE
  5. VITAMIN D2 [Concomitant]
     Active Substance: ERGOCALCIFEROL
  6. ALKA-SELTZER PLUS-D [Concomitant]
  7. CORTISONE [Concomitant]
     Active Substance: CORTISONE
  8. POTASSIUM CITRATE [Concomitant]
     Active Substance: POTASSIUM CITRATE
  9. VITAMIN C [Concomitant]
     Active Substance: ASCORBIC ACID
  10. URSODIOL [Concomitant]
     Active Substance: URSODIOL
  11. MINERALS\VITAMINS [Concomitant]
     Active Substance: MINERALS\VITAMINS
  12. CALCIUM [Concomitant]
     Active Substance: CALCIUM

REACTIONS (8)
  - Nephrolithiasis [Unknown]
  - Surgery [Unknown]
  - Skin discolouration [Recovered/Resolved]
  - Hypoaesthesia [Recovered/Resolved]
  - Neck pain [Unknown]
  - Asthenia [Unknown]
  - Haemorrhage [Unknown]
  - Discomfort [Unknown]

NARRATIVE: CASE EVENT DATE: 20250426
